FAERS Safety Report 4309523-7 (Version None)
Quarter: 2004Q1

REPORT INFORMATION
  Report Type: 
  Country: None (occurrence: None)
  Receive Date: 20040301
  Receipt Date: 20040223
  Transmission Date: 20041129
  Serious: No
  Sender: FDA-Public Use
  Company Number: 2004PK00363

PATIENT
  Age: 62 Year
  Sex: Female

DRUGS (3)
  1. SEROQUEL [Suspect]
     Indication: DEPRESSION
  2. LITHIUM [Concomitant]
  3. CIPRAMIL [Concomitant]

REACTIONS (1)
  - LEUKOPENIA [None]
